FAERS Safety Report 6271290-8 (Version None)
Quarter: 2009Q3

REPORT INFORMATION
  Report Type: 
  Country: None (occurrence: None)
  Receive Date: 20090717
  Receipt Date: 20090707
  Transmission Date: 20100115
  Serious: Yes (Other)
  Sender: FDA-Public Use
  Company Number: HOAFF40361

PATIENT
  Age: 26 Year
  Sex: Male

DRUGS (1)
  1. KETOCONAZOLE [Suspect]
     Indication: FUNGAL INFECTION
     Route: 048

REACTIONS (1)
  - HEPATITIS CHOLESTATIC [None]
